FAERS Safety Report 5502443-1 (Version None)
Quarter: 2007Q4

REPORT INFORMATION
  Report Type: 
  Country: None (occurrence: None)
  Receive Date: 20071030
  Receipt Date: 20071018
  Transmission Date: 20080405
  Serious: Yes (Death)
  Sender: FDA-Public Use
  Company Number: AU-PFIZER INC-2007078550

PATIENT
  Sex: Male
  Weight: 69 kg

DRUGS (7)
  1. SUTENT [Suspect]
     Route: 048
  2. RABEPRAZOLE SODIUM [Concomitant]
     Route: 048
  3. ALLOPURINOL [Concomitant]
     Route: 048
  4. LEVOTHYROXINE SODIUM [Concomitant]
     Route: 048
  5. ACETAMINOPHEN [Concomitant]
     Route: 048
  6. TENOPT [Concomitant]
  7. XALATAN [Concomitant]

REACTIONS (1)
  - DEATH [None]
